FAERS Safety Report 7778472-4 (Version None)
Quarter: 2011Q3

REPORT INFORMATION
  Report Type: 
  Country: None (occurrence: None)
  Receive Date: 20110926
  Receipt Date: 20110916
  Transmission Date: 20111222
  Serious: Yes (Death, Hospitalization)
  Sender: FDA-Public Use
  Company Number: SE-GLAXOSMITHKLINE-B0749971A

PATIENT
  Sex: Male

DRUGS (8)
  1. CITALOPRAM [Suspect]
     Indication: PRODUCT USED FOR UNKNOWN INDICATION
     Route: 048
     Dates: end: 20110731
  2. SIMVASTATIN [Concomitant]
  3. VALPROIC ACID [Concomitant]
  4. CLOPIDOGREL [Suspect]
     Indication: HYPERTONIA
     Route: 048
     Dates: start: 20110720, end: 20110728
  5. ASPIRIN [Suspect]
     Indication: ACUTE MYOCARDIAL INFARCTION
     Dosage: 75MG PER DAY
     Route: 048
     Dates: end: 20110725
  6. ARIXTRA [Suspect]
     Indication: ACUTE MYOCARDIAL INFARCTION
     Route: 058
     Dates: start: 20110720, end: 20110726
  7. METOPROLOL TARTRATE [Concomitant]
  8. FUROSEMIDE [Concomitant]

REACTIONS (1)
  - HAEMORRHAGE [None]
